FAERS Safety Report 7497013-2 (Version None)
Quarter: 2011Q2

REPORT INFORMATION
  Report Type: 
  Country: None (occurrence: None)
  Receive Date: 20110523
  Receipt Date: 20110516
  Transmission Date: 20111010
  Serious: Yes (Hospitalization)
  Sender: FDA-Public Use
  Company Number: US-PURDUE-USA-2011-0065713

PATIENT
  Age: 50 Year
  Sex: Female

DRUGS (1)
  1. BUTRANS [Suspect]
     Indication: PRODUCT USED FOR UNKNOWN INDICATION
     Dosage: 20 MCG/HR

REACTIONS (5)
  - OEDEMA PERIPHERAL [None]
  - SWOLLEN TONGUE [None]
  - LIP SWELLING [None]
  - SWELLING FACE [None]
  - PLATELET COUNT ABNORMAL [None]
